FAERS Safety Report 24148473 (Version 1)
Quarter: 2024Q3

REPORT INFORMATION
  Report Type: Spontaneous
  Country: US (occurrence: None)
  Receive Date: 20240728
  Receipt Date: 20240728
  Transmission Date: 20241017
  Serious: Yes (Life-Threatening, Hospitalization, Disabling)
  Sender: Public
  Company Number: None

PATIENT
  Age: 58 Year
  Sex: Female
  Weight: 99 kg

DRUGS (1)
  1. TERBINAFINE [Suspect]
     Active Substance: TERBINAFINE
     Indication: Onychomycosis
     Dosage: OTHER QUANTITY : 30 TABLET(S);?FREQUENCY : DAILY;?
     Route: 048
     Dates: start: 20240507, end: 20240705

REACTIONS (7)
  - Rash [None]
  - Rash [None]
  - Urticaria [None]
  - Sjogren^s syndrome [None]
  - Respiration abnormal [None]
  - Rash [None]
  - Blister [None]

NARRATIVE: CASE EVENT DATE: 20240702
